FAERS Safety Report 9494441 (Version 1)
Quarter: 2013Q3

REPORT INFORMATION
  Report Type: Spontaneous
  Country: US (occurrence: None)
  Receive Date: 20130830
  Receipt Date: 20130830
  Transmission Date: 20140515
  Serious: Yes (Disabling)
  Sender: FDA-Public Use
  Company Number: None

PATIENT
  Age: 89 Year
  Sex: Female
  Weight: 55.34 kg

DRUGS (4)
  1. SANTYL OINTMENT (NO PREF. NAME) [Suspect]
     Indication: SKIN ULCER
     Dosage: STRENGTH:  250 UNITS PER GRAM?QUANTITY:  TO FILL WOUND- ABOUT 1/2 TEASPOON?FREQUENCY:  ONCE DAILY?HOW:  PLACED IN WOUND TO COVER THE SURFACE?
     Dates: start: 20130731, end: 20130816
  2. LEVOTHYROXINE [Concomitant]
  3. D-3 [Concomitant]
  4. CALCIUM [Concomitant]

REACTIONS (6)
  - Blister [None]
  - Pain [None]
  - Rash [None]
  - Urticaria [None]
  - Pruritus [None]
  - Swelling [None]
